FAERS Safety Report 15312275 (Version 2)
Quarter: 2018Q3

REPORT INFORMATION
  Report Type: Spontaneous
  Country: JP (occurrence: JP)
  Receive Date: 20180823
  Receipt Date: 20180831
  Transmission Date: 20181010
  Serious: Yes (Other)
  Sender: FDA-Public Use
  Company Number: JP-PFIZER INC-2018339680

PATIENT
  Age: 43 Year
  Sex: Female

DRUGS (3)
  1. CYCLOPHOSPHAMIDE. [Concomitant]
     Active Substance: CYCLOPHOSPHAMIDE
     Indication: BREAST CANCER STAGE II
     Dosage: 600 MG/M2, EVERY 3 WEEKS ((FOUR CYCLES, EVERY 3 WEEKS)
  2. DOXORUBICIN [Concomitant]
     Active Substance: DOXORUBICIN
     Indication: BREAST CANCER STAGE II
     Dosage: 60 MG/M2, EVERY 3 WEEKS (FOUR CYCLES, EVERY 3 WEEKS)
  3. PACLITAXEL. [Suspect]
     Active Substance: PACLITAXEL
     Indication: BREAST CANCER STAGE II
     Dosage: 80 MG/M2, WEEKLY (12 CYCLES OF WEEKLY PACLITAXEL 80 MG/M^2)

REACTIONS (1)
  - Skin disorder [Recovering/Resolving]
